FAERS Safety Report 5099622-7 (Version None)
Quarter: 2006Q3

REPORT INFORMATION
  Report Type: 
  Country: None (occurrence: None)
  Receive Date: 20060906
  Receipt Date: 20060822
  Transmission Date: 20061208
  Serious: Yes (Other)
  Sender: FDA-Public Use
  Company Number: 2006US-03384

PATIENT
  Age: 76 Year
  Sex: Female

DRUGS (3)
  1. RANITIDINE [Suspect]
     Dosage: 75 MG, QD, ORAL
     Route: 048
  2. MAXZIDE [Concomitant]
  3. OGDEN [Concomitant]

REACTIONS (5)
  - DIZZINESS [None]
  - DRUG INTERACTION [None]
  - HYPERHIDROSIS [None]
  - NAUSEA [None]
  - VOMITING [None]
